FAERS Safety Report 10716221 (Version 2)
Quarter: 2015Q1

REPORT INFORMATION
  Report Type: Spontaneous
  Country: US (occurrence: US)
  Receive Date: 20150116
  Receipt Date: 20150209
  Transmission Date: 20150721
  Serious: Yes (Hospitalization)
  Sender: FDA-Public Use
  Company Number: US-JNJFOC-20150107438

PATIENT
  Age: 57 Year
  Sex: Male
  Weight: 85.28 kg

DRUGS (9)
  1. MELOXICAM. [Concomitant]
     Active Substance: MELOXICAM
     Indication: PAIN
     Dosage: HIGHER GRID IBUPROFEN TO 7.5 MG HELP WITH PAIN ISSUES
     Route: 065
  2. NUCYNTA [Suspect]
     Active Substance: TAPENTADOL HYDROCHLORIDE
     Indication: PAIN
     Dosage: NUCYNTA 50 MG TABLETS, 4-6 TABLETS A DAY
     Route: 048
     Dates: end: 201501
  3. MIRTAZAPINE. [Concomitant]
     Active Substance: MIRTAZAPINE
     Indication: INCREASED APPETITE
     Dosage: AID IN SLEEP AND ALSO TO??HELP TO BUILD UP MY??APPETITIE
     Route: 065
  4. BACLOFEN. [Concomitant]
     Active Substance: BACLOFEN
     Indication: MUSCLE SPASMS
     Route: 065
     Dates: start: 2014
  5. TIZANIDINE (TIZANIDINE) [Concomitant]
     Active Substance: TIZANIDINE
     Indication: MUSCLE SPASMS
     Dosage: 4 MG COUPLE OF DAYS HERE AND THERE
     Route: 065
     Dates: end: 2014
  6. MORPHINE SULFATE. [Concomitant]
     Active Substance: MORPHINE SULFATE
     Indication: PRODUCT USED FOR UNKNOWN INDICATION
     Route: 065
     Dates: start: 20150109
  7. BUPROPION [Concomitant]
     Active Substance: BUPROPION
     Indication: PRODUCT USED FOR UNKNOWN INDICATION
     Dosage: 25 MG WEEKLY
     Route: 065
     Dates: start: 2014
  8. MIRTAZAPINE. [Concomitant]
     Active Substance: MIRTAZAPINE
     Indication: SLEEP DISORDER THERAPY
     Dosage: AID IN SLEEP AND ALSO TO??HELP TO BUILD UP MY??APPETITIE
     Route: 065
  9. FENTANYL. [Concomitant]
     Active Substance: FENTANYL
     Indication: PRODUCT USED FOR UNKNOWN INDICATION
     Dosage: 25 MCG 3 DAYS
     Route: 065
     Dates: start: 2014

REACTIONS (3)
  - Tremor [Not Recovered/Not Resolved]
  - Pain [Unknown]
  - Osteoarthritis [Unknown]

NARRATIVE: CASE EVENT DATE: 201501
